FAERS Safety Report 6425138-9 (Version None)
Quarter: 2009Q4

REPORT INFORMATION
  Report Type: 
  Country: None (occurrence: None)
  Receive Date: 20091029
  Receipt Date: 20090921
  Transmission Date: 20100525
  Serious: Yes (Hospitalization)
  Sender: FDA-Public Use
  Company Number: 200917343US

PATIENT
  Age: 50 Year
  Sex: 0
  Weight: 74.5 kg

DRUGS (14)
  1. TAXOTERE [Suspect]
     Indication: BREAST CANCER
     Dosage: CYC IV
     Route: 042
     Dates: start: 20090717, end: 20090717
  2. CARBOPLATIN [Suspect]
     Indication: BREAST CANCER
     Dosage: CYC IV
     Route: 042
     Dates: start: 20090717, end: 20090717
  3. HERCEPTIN [Suspect]
     Indication: BREAST CANCER
     Dosage: CYC IV
     Route: 042
     Dates: start: 20090717, end: 20090717
  4. PROZAC [Concomitant]
  5. HYDROCHLOROTHIAZIDE [Concomitant]
  6. PRAVASTATIN SODIUM (PRAVACHOL) [Concomitant]
  7. FLEXERIL [Concomitant]
  8. XANAX [Concomitant]
  9. HYDROCODONE [Concomitant]
  10. PSEUDOEPHEDRINE HYDROCHLORIDE [Concomitant]
  11. IBUPROFEN [Concomitant]
  12. REGLAN [Concomitant]
  13. MULTI-VITAMIN [Concomitant]
  14. DIPHENHYDRAMINE HYDROCHLORIDE (BENADRYL) [Concomitant]

REACTIONS (8)
  - ABDOMINAL PAIN [None]
  - COLITIS [None]
  - COLONIC STENOSIS [None]
  - DIVERTICULUM [None]
  - FATIGUE [None]
  - GASTROINTESTINAL NECROSIS [None]
  - HAEMATOCHEZIA [None]
  - INFLAMMATION [None]
